FAERS Safety Report 11445716 (Version 2)
Quarter: 2015Q3

REPORT INFORMATION
  Report Type: Spontaneous
  Country: LB (occurrence: LB)
  Receive Date: 20150902
  Receipt Date: 20150914
  Transmission Date: 20151125
  Serious: Yes (Death, Life-Threatening)
  Sender: FDA-Public Use
  Company Number: LB-NOVOPROD-461886

PATIENT
  Age: 75 Year
  Sex: Male
  Weight: 60 kg

DRUGS (6)
  1. NOVOSEVEN [Suspect]
     Active Substance: COAGULATION FACTOR VIIA RECOMBINANT HUMAN
     Dosage: 5MG EVERY 4H
     Route: 065
     Dates: start: 20150821
  2. NOVOSEVEN [Suspect]
     Active Substance: COAGULATION FACTOR VIIA RECOMBINANT HUMAN
     Indication: RECTAL HAEMORRHAGE
     Dosage: 5MG EVERY 2 HOURS (90MCG/KG)
     Route: 065
     Dates: start: 20150820
  3. NOVOSEVEN [Suspect]
     Active Substance: COAGULATION FACTOR VIIA RECOMBINANT HUMAN
     Dosage: 5MG EVERY 2H
     Route: 065
     Dates: start: 20150822
  4. NOVOSEVEN [Suspect]
     Active Substance: COAGULATION FACTOR VIIA RECOMBINANT HUMAN
     Indication: FACTOR VII DEFICIENCY
     Dosage: 1 MG EVERY 2 HOURS (17MCG/KG) FOR TWO DOSES, 5 MG FOR EVERY TOW HOURS (90 MCG/KG)
     Route: 065
     Dates: start: 20150819
  5. NOVOSEVEN [Suspect]
     Active Substance: COAGULATION FACTOR VIIA RECOMBINANT HUMAN
     Dosage: 5MG EVERY 6H
     Route: 065
     Dates: start: 20150824, end: 20150825
  6. NOVOSEVEN [Suspect]
     Active Substance: COAGULATION FACTOR VIIA RECOMBINANT HUMAN
     Dosage: 5MG EVERY 2H
     Route: 065
     Dates: start: 20150823

REACTIONS (1)
  - Cerebrovascular accident [Fatal]

NARRATIVE: CASE EVENT DATE: 20150824
